FAERS Safety Report 18439365 (Version 1)
Quarter: 2020Q4

REPORT INFORMATION
  Report Type: Spontaneous
  Country: US (occurrence: US)
  Receive Date: 20201029
  Receipt Date: 20201029
  Transmission Date: 20210114
  Serious: Yes (Other)
  Sender: FDA-Public Use
  Company Number: US-UCBSA-2020041898

PATIENT
  Age: 41 Year
  Sex: Female

DRUGS (9)
  1. TINIDAZOLE. [Concomitant]
     Active Substance: TINIDAZOLE
     Indication: CROHN^S DISEASE
  2. ALLOPURINOL. [Concomitant]
     Active Substance: ALLOPURINOL
     Indication: CROHN^S DISEASE
  3. LEVOTHYROXINE. [Concomitant]
     Active Substance: LEVOTHYROXINE
     Indication: HYPOTHYROIDISM
  4. CIMZIA [Suspect]
     Active Substance: CERTOLIZUMAB PEGOL
     Indication: CROHN^S DISEASE
     Dosage: UNK
  5. AZATHIOPRINE. [Concomitant]
     Active Substance: AZATHIOPRINE
     Indication: CROHN^S DISEASE
  6. PREDNISONE. [Concomitant]
     Active Substance: PREDNISONE
     Indication: CROHN^S DISEASE
  7. ENTYVIO [Concomitant]
     Active Substance: VEDOLIZUMAB
     Indication: CROHN^S DISEASE
  8. CLARITHROMYCIN. [Concomitant]
     Active Substance: CLARITHROMYCIN
     Indication: CROHN^S DISEASE
  9. RIFAMPIN. [Concomitant]
     Active Substance: RIFAMPIN
     Indication: CROHN^S DISEASE

REACTIONS (7)
  - Depression [Unknown]
  - Hypothalamo-pituitary disorder [Unknown]
  - Sleep disorder [Not Recovered/Not Resolved]
  - Mood swings [Not Recovered/Not Resolved]
  - Crohn^s disease [Unknown]
  - Hypothyroidism [Unknown]
  - Anxiety [Unknown]
